FAERS Safety Report 7715748-0 (Version None)
Quarter: 2011Q3

REPORT INFORMATION
  Report Type: 
  Country: None (occurrence: None)
  Receive Date: 20110829
  Receipt Date: 20110822
  Transmission Date: 20111222
  Serious: Yes (Death, Other)
  Sender: FDA-Public Use
  Company Number: IN-PFIZER INC-2011194933

PATIENT
  Age: 52 Year
  Sex: Male

DRUGS (13)
  1. BELATACEPT [Suspect]
     Indication: RENAL TRANSPLANT
     Dosage: 100 MG, UNK
     Route: 042
     Dates: start: 20070528, end: 20100426
  2. CELLCEPT [Suspect]
     Indication: RENAL TRANSPLANT
     Dosage: UNK
     Dates: start: 20100329, end: 20100709
  3. TACROLIMUS [Concomitant]
     Dosage: UNK
     Dates: start: 20100426, end: 20100709
  4. IMDUR [Concomitant]
     Dosage: UNK
     Dates: start: 20070919, end: 20100709
  5. RAMACE [Concomitant]
     Dosage: UNK
     Dates: start: 20100105, end: 20100709
  6. NOVORAPID [Concomitant]
     Dosage: UNK
     Dates: start: 20081110, end: 20100709
  7. URIMAX [Concomitant]
     Dosage: UNK
     Dates: start: 20080204, end: 20100709
  8. PREDNISOLONE [Suspect]
     Indication: RENAL TRANSPLANT
     Dosage: 5 MG, 1X/DAY
     Route: 048
     Dates: start: 20100105, end: 20100709
  9. METFORMIN [Concomitant]
     Dosage: UNK
     Dates: start: 20090331, end: 20100709
  10. LOSACOR [Concomitant]
     Dosage: UNK
     Dates: start: 20090818, end: 20100709
  11. SERTA [Concomitant]
  12. BECOZYME FORTE [Concomitant]
  13. FOLVITE [Concomitant]
     Dosage: UNK
     Dates: start: 20100329, end: 20100709

REACTIONS (4)
  - SEPSIS [None]
  - BRADYCARDIA [None]
  - TUBERCULOSIS [None]
  - CARDIAC ARREST [None]
